FAERS Safety Report 23941291 (Version 1)
Quarter: 2024Q2

REPORT INFORMATION
  Report Type: Spontaneous
  Country: CN (occurrence: CN)
  Receive Date: 20240605
  Receipt Date: 20240605
  Transmission Date: 20240716
  Serious: Yes (Hospitalization)
  Sender: FDA-Public Use
  Company Number: CN-PFIZER INC-PV202400073571

PATIENT
  Age: 9 Year
  Sex: Male
  Weight: 28.5 kg

DRUGS (1)
  1. METHOTREXATE SODIUM [Suspect]
     Active Substance: METHOTREXATE SODIUM
     Indication: Acute lymphocytic leukaemia
     Dosage: 0.5 G, 1X/DAY
     Route: 041
     Dates: start: 20240523, end: 20240523

REACTIONS (3)
  - Skin injury [Unknown]
  - Pruritus [Unknown]
  - Scab [Unknown]

NARRATIVE: CASE EVENT DATE: 20240527
